FAERS Safety Report 4472632-6 (Version None)
Quarter: 2004Q4

REPORT INFORMATION
  Report Type: 
  Country: None (occurrence: None)
  Receive Date: 20041012
  Receipt Date: 20041012
  Transmission Date: 20050328
  Serious: Yes (Hospitalization)
  Sender: FDA-Public Use
  Company Number: None

PATIENT
  Sex: Male
  Weight: 89.3 kg

DRUGS (5)
  1. CISPLATIN [Suspect]
     Indication: SMALL CELL LUNG CANCER STAGE UNSPECIFIED
     Dosage: 129 MG / 129 MG
     Dates: start: 20040907
  2. CISPLATIN [Suspect]
     Indication: SMALL CELL LUNG CANCER STAGE UNSPECIFIED
     Dosage: 129 MG / 129 MG
     Dates: start: 20040929
  3. ETOPOSIDE [Suspect]
     Dosage: 258 MG / 259 MG
     Dates: start: 20040907
  4. ETOPOSIDE [Suspect]
     Dosage: 258 MG / 259 MG
     Dates: start: 20040929
  5. RADIATION [Concomitant]

REACTIONS (4)
  - ASTHENIA [None]
  - FALL [None]
  - FATIGUE [None]
  - FEBRILE NEUTROPENIA [None]
